FAERS Safety Report 14192331 (Version 1)
Quarter: 2017Q4

REPORT INFORMATION
  Report Type: Report from Study
  Country: BR (occurrence: BR)
  Receive Date: 20171115
  Receipt Date: 20171115
  Transmission Date: 20180321
  Serious: Yes (Other)
  Sender: FDA-Public Use
  Company Number: BR-GILEAD-2017-0304728

PATIENT

DRUGS (3)
  1. DACLATASVIR DIHYDROCHLORIDE [Concomitant]
     Active Substance: DACLATASVIR DIHYDROCHLORIDE
     Indication: CHRONIC HEPATITIS C
  2. SIMEPREVIR [Concomitant]
     Active Substance: SIMEPREVIR
  3. SOFOSBUVIR [Suspect]
     Active Substance: SOFOSBUVIR
     Indication: CHRONIC HEPATITIS C
     Route: 065

REACTIONS (1)
  - Urinary tract infection [Unknown]
